FAERS Safety Report 7927607-9 (Version None)
Quarter: 2011Q4

REPORT INFORMATION
  Report Type: 
  Country: None (occurrence: None)
  Receive Date: 20111118
  Receipt Date: 20111110
  Transmission Date: 20120403
  Serious: Yes (Other)
  Sender: FDA-Public Use
  Company Number: GB-ROCHE-1013509

PATIENT
  Sex: Male

DRUGS (6)
  1. OMEPRAZOLE [Concomitant]
  2. NITROGLYCERIN [Concomitant]
  3. TAMSULOSIN HCL [Concomitant]
  4. ASPIRIN [Concomitant]
  5. LUCENTIS [Suspect]
     Indication: PRODUCT USED FOR UNKNOWN INDICATION
     Route: 050
  6. SIMVASTATIN [Concomitant]

REACTIONS (1)
  - HYPERTENSION [None]
